FAERS Safety Report 14261634 (Version 5)
Quarter: 2019Q3

REPORT INFORMATION
  Report Type: Report from Study
  Country: GB (occurrence: DE)
  Receive Date: 20171208
  Receipt Date: 20190821
  Transmission Date: 20191004
  Serious: Yes (Hospitalization, Other)
  Sender: FDA-Public Use
  Company Number: DE-ASTELLAS-2017US051121

PATIENT
  Age: 69 Year
  Sex: Male

DRUGS (14)
  1. JAKAVI [Suspect]
     Active Substance: RUXOLITINIB
     Dosage: 20 MG, TWICE DAILY (20 MG/DAY/TWICE)
     Route: 048
     Dates: start: 20160817
  2. PANTOZOL [Concomitant]
     Active Substance: PANTOPRAZOLE SODIUM
     Indication: PROPHYLAXIS
     Route: 065
     Dates: start: 20161210
  3. JAKAVI [Suspect]
     Active Substance: RUXOLITINIB
     Indication: PRIMARY MYELOFIBROSIS
     Dosage: UNK UNK, MONTH PRIOR TO STUDY INCLUSION
     Route: 048
  4. JAKAVI [Suspect]
     Active Substance: RUXOLITINIB
     Dosage: 2 DF, ONCE DAILY (10 MG)
     Route: 048
     Dates: start: 20160801, end: 20160817
  5. PENTACARINAT [Concomitant]
     Active Substance: PENTAMIDINE ISETHIONATE
     Indication: PROPHYLAXIS
     Dosage: UNK, EVERY 4 WEEKS PER DAY
     Route: 055
     Dates: start: 20161210
  6. NOXAFIL [Concomitant]
     Active Substance: POSACONAZOLE
     Indication: ANTIFUNGAL PROPHYLAXIS
     Route: 065
     Dates: start: 20170615
  7. POSACONAZOLE [Concomitant]
     Active Substance: POSACONAZOLE
     Indication: PROPHYLAXIS AGAINST TRANSPLANT REJECTION
     Route: 065
     Dates: start: 20161210
  8. JAKAVI [Suspect]
     Active Substance: RUXOLITINIB
     Dosage: 20 MG, TWICE DAILY (20 MG/DAY/TWICE)
     Route: 048
     Dates: start: 20170719
  9. MEROPENEM. [Concomitant]
     Active Substance: MEROPENEM
     Indication: PRODUCT USED FOR UNKNOWN INDICATION
     Dosage: UNK, ONCE DAILY
     Route: 065
     Dates: start: 20161009, end: 20161107
  10. ASPIRIN. [Concomitant]
     Active Substance: ASPIRIN
     Indication: PRODUCT USED FOR UNKNOWN INDICATION
     Dosage: 100 OT, ONCE DAILY
     Route: 065
     Dates: start: 20170327
  11. TACROLIMUS. [Suspect]
     Active Substance: TACROLIMUS
     Indication: STEM CELL TRANSPLANT
     Route: 065
  12. JAKAVI [Suspect]
     Active Substance: RUXOLITINIB
     Dosage: 2 DF, ONCE DAILY (5 MG)
     Route: 048
     Dates: start: 20170327
  13. MAGNETRANS                         /07349401/ [Concomitant]
     Indication: MINERAL SUPPLEMENTATION
     Route: 065
     Dates: start: 20161210
  14. ACICLOVIR [Concomitant]
     Active Substance: ACYCLOVIR
     Indication: ANTIVIRAL PROPHYLAXIS
     Route: 065
     Dates: start: 20170721

REACTIONS (13)
  - Metabolic acidosis [Recovered/Resolved with Sequelae]
  - Diabetes mellitus [Unknown]
  - Leukocytosis [Recovered/Resolved]
  - Diarrhoea [Recovered/Resolved]
  - Thrombocytosis [Unknown]
  - Polycythaemia [Unknown]
  - Acute kidney injury [Recovered/Resolved with Sequelae]
  - Graft versus host disease [Not Recovered/Not Resolved]
  - Hyperglycaemia [Recovered/Resolved with Sequelae]
  - Respiratory disorder [Recovered/Resolved with Sequelae]
  - Thrombocytopenia [Recovered/Resolved with Sequelae]
  - Leukocytosis [Recovered/Resolved with Sequelae]
  - Blast cell crisis [Recovering/Resolving]

NARRATIVE: CASE EVENT DATE: 20160808
